FAERS Safety Report 9778459 (Version 1)
Quarter: 2013Q4

REPORT INFORMATION
  Report Type: Spontaneous
  Country: CA (occurrence: CA)
  Receive Date: 20131223
  Receipt Date: 20131223
  Transmission Date: 20140711
  Serious: Yes (Hospitalization)
  Sender: FDA-Public Use
  Company Number: CA-ASTELLAS-2013US013015

PATIENT
  Age: 55 Year
  Sex: Male

DRUGS (1)
  1. ADVAGRAF [Suspect]
     Indication: RENAL TRANSPLANT
     Dosage: 8 MG, UID/QD
     Route: 048
     Dates: start: 20120511

REACTIONS (5)
  - Escherichia infection [Unknown]
  - Beta haemolytic streptococcal infection [Unknown]
  - Urinary tract infection [Unknown]
  - Pyrexia [Unknown]
  - Parathyroid disorder [Unknown]
